FAERS Safety Report 5657106-9 (Version None)
Quarter: 2008Q1

REPORT INFORMATION
  Report Type: 
  Country: None (occurrence: None)
  Receive Date: 20080310
  Receipt Date: 20080226
  Transmission Date: 20080703
  Serious: Yes (Life-Threatening)
  Sender: FDA-Public Use
  Company Number: FR-ROCHE-550259

PATIENT

DRUGS (2)
  1. PEG-INTERFERON ALFA 2A (RO 25-8310) [Suspect]
     Route: 065
  2. IMATINIB [Suspect]
     Dosage: DRUG REPORTED AS GLIVEC 400
     Route: 065

REACTIONS (1)
  - CARDIAC FAILURE [None]
